FAERS Safety Report 6734253-1 (Version None)
Quarter: 2010Q2

REPORT INFORMATION
  Report Type: 
  Country: None (occurrence: None)
  Receive Date: 20100520
  Receipt Date: 20100511
  Transmission Date: 20101027
  Serious: Yes (Disabling)
  Sender: FDA-Public Use
  Company Number: PHHY2010US26755

PATIENT
  Sex: Female
  Weight: 132 kg

DRUGS (13)
  1. RECLAST [Suspect]
     Indication: OSTEOPOROSIS
     Dosage: 5 MG/100 ML ONCE YEARLY
     Dates: start: 20100421
  2. FOTOLOL [Concomitant]
  3. DIGOXIN [Concomitant]
     Dosage: 0.125 MG
  4. STARLIX [Concomitant]
     Dosage: 120 MG, TID
  5. LOVASTATIN [Concomitant]
     Dosage: 80 MG
  6. ZETIA [Concomitant]
  7. COUMADIN [Concomitant]
     Dosage: 5 MG THE FIRST DAY AND 2.5 MG FOR THE NEXT 3 DAYS.
  8. ZOLANTIN [Concomitant]
     Indication: ABNORMAL SENSATION IN EYE
  9. DIOVAN [Concomitant]
     Dosage: 160 MG
  10. SOTALOL HCL [Concomitant]
     Dosage: 80 MG, BID
  11. ASPIRIN [Concomitant]
     Dosage: 81 MG
  12. NITROFURANTOIN [Concomitant]
     Dosage: 100 MG, BID
  13. ZOFRAN [Concomitant]
     Dosage: 2 X/DAY

REACTIONS (10)
  - BACK PAIN [None]
  - GAIT DISTURBANCE [None]
  - HEADACHE [None]
  - INFLUENZA LIKE ILLNESS [None]
  - MALAISE [None]
  - MUSCULOSKELETAL PAIN [None]
  - MYALGIA [None]
  - NAUSEA [None]
  - PAIN [None]
  - VOMITING [None]
